FAERS Safety Report 16712610 (Version 1)
Quarter: 2019Q3

REPORT INFORMATION
  Report Type: Spontaneous
  Country: FR (occurrence: FR)
  Receive Date: 20190816
  Receipt Date: 20190816
  Transmission Date: 20191004
  Serious: Yes (Death, Other)
  Sender: FDA-Public Use
  Company Number: PHHY2019FR189655

PATIENT
  Age: 32 Year

DRUGS (4)
  1. ANTITHYMOCYTE IMMUNOGLOBULIN [Suspect]
     Active Substance: THYMOCYTE IMMUNE GLOBULIN NOS
     Indication: ALLOGENIC STEM CELL TRANSPLANTATION
     Route: 065
  2. BUSULFAN. [Suspect]
     Active Substance: BUSULFAN
     Indication: ALLOGENIC STEM CELL TRANSPLANTATION
     Route: 065
  3. THIOTEPA. [Suspect]
     Active Substance: THIOTEPA
     Indication: ALLOGENIC STEM CELL TRANSPLANTATION
     Route: 065
  4. FLUDARABINE [Suspect]
     Active Substance: FLUDARABINE PHOSPHATE
     Indication: ALLOGENIC STEM CELL TRANSPLANTATION
     Route: 065

REACTIONS (5)
  - Anaemia [Unknown]
  - Infection [Fatal]
  - Cystitis haemorrhagic [Unknown]
  - Cytomegalovirus infection [Unknown]
  - Herpes simplex [Unknown]
